FAERS Safety Report 4683144-9 (Version None)
Quarter: 2005Q2

REPORT INFORMATION
  Report Type: 
  Country: None (occurrence: None)
  Receive Date: 20050602
  Receipt Date: 20050331
  Transmission Date: 20051028
  Serious: No
  Sender: FDA-Public Use
  Company Number: USA050494609

PATIENT
  Age: 46 Year
  Sex: Male

DRUGS (7)
  1. CYMBALTA [Suspect]
     Indication: DEPRESSION
     Dosage: 60 MG DAY
  2. ZYPREXA [Suspect]
     Dosage: 7.5 MG AS NEEDED
  3. SYNTHROID [Concomitant]
  4. SEROQU (QUETIAPINE FUMARATE) [Concomitant]
  5. DIAZEPAM [Concomitant]
  6. LAMICTAL [Concomitant]
  7. ZANTAC [Concomitant]

REACTIONS (1)
  - HOMICIDAL IDEATION [None]
